FAERS Safety Report 5202484-8 (Version None)
Quarter: 2006Q4

REPORT INFORMATION
  Report Type: 
  Country: None (occurrence: None)
  Receive Date: 20061010
  Receipt Date: 20060905
  Transmission Date: 20070319
  Serious: Yes (Hospitalization)
  Sender: FDA-Public Use
  Company Number: SPV1-2006-00677

PATIENT
  Age: 32 Year
  Sex: Male
  Weight: 84.6 kg

DRUGS (5)
  1. EQUETRO [Suspect]
     Indication: BIPOLAR DISORDER
     Dosage: 400 MG, 2X/DAY:BID
     Dates: start: 20060811, end: 20060827
  2. SEROQUEL [Concomitant]
  3. XANAX [Concomitant]
  4. AMBIEN [Concomitant]
  5. LITHIUM CARBONATE [Concomitant]

REACTIONS (2)
  - DIARRHOEA [None]
  - VOMITING [None]
